FAERS Safety Report 9206529 (Version 1)
Quarter: 2013Q2

REPORT INFORMATION
  Report Type: Spontaneous
  Country: ES (occurrence: ES)
  Receive Date: 20130403
  Receipt Date: 20130403
  Transmission Date: 20140414
  Serious: Yes (Hospitalization)
  Sender: FDA-Public Use
  Company Number: ES-PFIZER INC-2013103918

PATIENT
  Age: 66 Year
  Sex: Male

DRUGS (21)
  1. ALDACTONE [Suspect]
     Dosage: 100 MG, 1X/DAY
     Route: 048
     Dates: start: 2010, end: 20130202
  2. FUROSEMIDE [Interacting]
     Dosage: 40 MG, 2X/DAY
     Route: 048
     Dates: start: 2010, end: 20130202
  3. LOSARTAN [Interacting]
     Dosage: UNK
     Route: 048
     Dates: start: 2010, end: 20130202
  4. HIGROTONA [Interacting]
     Dosage: 50 MG, 1X/DAY
     Route: 048
     Dates: start: 2010, end: 20130202
  5. ENOXAPARIN [Concomitant]
     Dosage: 80 MG, 1X/DAY
     Route: 058
     Dates: start: 20130124
  6. INSULIN GLARGINE [Concomitant]
     Dosage: 30 IU, 1X/DAY
     Route: 058
  7. OMEPRAZOLE [Concomitant]
     Route: 048
  8. INSULINA ASPARTA [Concomitant]
     Dosage: 16 IU, 1X/DAY
     Route: 058
  9. ATORVASTATIN [Concomitant]
     Route: 048
  10. CARVEDILOL [Concomitant]
     Dosage: 6.25 MG, 2X/DAY
     Route: 048
  11. TAMSULOSIN [Concomitant]
     Route: 048
  12. MAGNESIUM [Concomitant]
     Route: 048
  13. ADIRO [Concomitant]
     Dosage: 100 MG, 1X/DAY
     Route: 048
  14. AREMIS [Concomitant]
     Route: 048
  15. BOI-K ASPARTICO [Concomitant]
     Route: 048
  16. DUODART [Concomitant]
     Route: 048
  17. MINITRAN [Concomitant]
     Route: 062
  18. PULMICORT TURBUHALER [Concomitant]
     Route: 055
  19. SEREVENT [Concomitant]
     Route: 055
  20. SPIRIVA [Concomitant]
     Route: 055
  21. TARDYFERON [Concomitant]
     Route: 048

REACTIONS (2)
  - Renal failure acute [Recovered/Resolved]
  - Drug interaction [Recovered/Resolved]
